FAERS Safety Report 22131425 (Version 1)
Quarter: 2023Q1

REPORT INFORMATION
  Report Type: Spontaneous
  Country: US (occurrence: US)
  Receive Date: 20230323
  Receipt Date: 20230323
  Transmission Date: 20230418
  Serious: No
  Sender: FDA-Public Use
  Company Number: US-009507513-2302USA007937

PATIENT
  Age: 64 Year
  Sex: Male

DRUGS (10)
  1. TRUSOPT [Suspect]
     Active Substance: DORZOLAMIDE HYDROCHLORIDE
     Indication: Developmental glaucoma
     Dosage: UNK, IN BOTH EYES
  2. TRUSOPT [Suspect]
     Active Substance: DORZOLAMIDE HYDROCHLORIDE
     Indication: Uveitic glaucoma
  3. NETARSUDIL [Concomitant]
     Active Substance: NETARSUDIL
     Indication: Developmental glaucoma
  4. NETARSUDIL [Concomitant]
     Active Substance: NETARSUDIL
     Indication: Uveitic glaucoma
  5. LATANOPROST [Concomitant]
     Active Substance: LATANOPROST
     Indication: Developmental glaucoma
  6. LATANOPROST [Concomitant]
     Active Substance: LATANOPROST
     Indication: Uveitic glaucoma
  7. BRIMONIDINE TARTRATE\TIMOLOL MALEATE [Concomitant]
     Active Substance: BRIMONIDINE TARTRATE\TIMOLOL MALEATE
     Indication: Developmental glaucoma
  8. BRIMONIDINE TARTRATE\TIMOLOL MALEATE [Concomitant]
     Active Substance: BRIMONIDINE TARTRATE\TIMOLOL MALEATE
     Indication: Uveitic glaucoma
  9. ACETAZOLAMIDE [Concomitant]
     Active Substance: ACETAZOLAMIDE
     Indication: Developmental glaucoma
  10. ACETAZOLAMIDE [Concomitant]
     Active Substance: ACETAZOLAMIDE
     Indication: Uveitic glaucoma

REACTIONS (1)
  - Product use in unapproved indication [Unknown]
